FAERS Safety Report 9285799 (Version 1)
Quarter: 2013Q2

REPORT INFORMATION
  Report Type: Spontaneous
  Country: GB (occurrence: GB)
  Receive Date: 20130513
  Receipt Date: 20130513
  Transmission Date: 20140414
  Serious: Yes (Other)
  Sender: FDA-Public Use
  Company Number: GB-TEVA-401858ISR

PATIENT
  Age: 41 Year
  Sex: Female

DRUGS (1)
  1. COPAXONE [Suspect]
     Dosage: 20 MG/ML DAILY;
     Route: 058
     Dates: start: 20130411

REACTIONS (5)
  - Convulsion [Unknown]
  - Rash [Unknown]
  - Pain [Unknown]
  - Headache [Unknown]
  - Sensory loss [Unknown]
